FAERS Safety Report 5273793-1 (Version None)
Quarter: 2007Q1

REPORT INFORMATION
  Report Type: 
  Country: None (occurrence: None)
  Receive Date: 20070321
  Receipt Date: 20070321
  Transmission Date: 20070707
  Serious: Yes (Other)
  Sender: FDA-Public Use
  Company Number: None

PATIENT
  Sex: Male

DRUGS (9)
  1. REVLIMID [Suspect]
     Indication: MULTIPLE MYELOMA
     Dosage: 25MG   DAILY  21D/28D   PO
     Route: 048
  2. AVELOX [Concomitant]
  3. ZOLOFT [Concomitant]
  4. AMOXICILLIN [Concomitant]
  5. ATIVAN [Concomitant]
  6. DECADRON [Concomitant]
  7. LOVASTATIN [Concomitant]
  8. PROBENECID [Concomitant]
  9. ENALAPRIL MALEATE [Concomitant]

REACTIONS (1)
  - PNEUMONIA [None]
